FAERS Safety Report 18930390 (Version 1)
Quarter: 2021Q1

REPORT INFORMATION
  Report Type: Report from Study
  Country: CA (occurrence: CA)
  Receive Date: 20210224
  Receipt Date: 20210224
  Transmission Date: 20210420
  Serious: Yes (Other)
  Sender: FDA-Public Use
  Company Number: CA-JNJFOC-20210136328

PATIENT
  Age: 49 Year
  Sex: Male
  Weight: 75 kg

DRUGS (2)
  1. IMURAN [Concomitant]
     Active Substance: AZATHIOPRINE
     Indication: PRODUCT USED FOR UNKNOWN INDICATION
     Route: 065
  2. REMICADE [Suspect]
     Active Substance: INFLIXIMAB
     Indication: CROHN^S DISEASE
     Route: 042

REACTIONS (6)
  - Fistula [Recovered/Resolved]
  - Hepatic cirrhosis [Unknown]
  - Off label use [Unknown]
  - Body temperature increased [Recovered/Resolved]
  - Oesophageal ulcer [Not Recovered/Not Resolved]
  - Product use issue [Unknown]

NARRATIVE: CASE EVENT DATE: 202012
